FAERS Safety Report 6118854-X (Version None)
Quarter: 2009Q1

REPORT INFORMATION
  Report Type: 
  Country: None (occurrence: None)
  Receive Date: 20090316
  Receipt Date: 20090310
  Transmission Date: 20090719
  Serious: Yes (Other)
  Sender: FDA-Public Use
  Company Number: BR-JNJFOC-20090302652

PATIENT
  Age: 63 Year
  Sex: Male

DRUGS (3)
  1. HALDOL [Suspect]
     Dosage: 1 ON MORNING,2 ON AFTERNOON AND 1 AT NIGHT
     Route: 065
  2. HALDOL [Suspect]
     Indication: DRUG USE FOR UNKNOWN INDICATION
     Route: 065
  3. AKINETON [Concomitant]
     Indication: DRUG USE FOR UNKNOWN INDICATION
     Route: 065

REACTIONS (1)
  - GAIT DISTURBANCE [None]
